FAERS Safety Report 22350049 (Version 1)
Quarter: 2023Q2

REPORT INFORMATION
  Report Type: Other
  Country: CN (occurrence: CN)
  Receive Date: 20230522
  Receipt Date: 20230522
  Transmission Date: 20230722
  Serious: Yes (Life-Threatening)
  Sender: FDA-Public Use
  Company Number: CN-GE HEALTHCARE-2023CSU003868

PATIENT
  Age: 34 Year
  Sex: Female
  Weight: 40 kg

DRUGS (4)
  1. OMNIPAQUE [Suspect]
     Active Substance: IOHEXOL
     Indication: Allergy test
     Dosage: UNK UNK, SINGLE
     Route: 023
     Dates: start: 20230430, end: 20230430
  2. OMNIPAQUE [Suspect]
     Active Substance: IOHEXOL
     Indication: Computerised tomogram head
     Dosage: 60 ML, SINGLE
     Route: 040
     Dates: start: 20230430, end: 20230430
  3. OMNIPAQUE [Suspect]
     Active Substance: IOHEXOL
     Indication: Computerised tomogram neck
  4. OMNIPAQUE [Suspect]
     Active Substance: IOHEXOL
     Indication: Product used for unknown indication

REACTIONS (5)
  - Temperature intolerance [Recovered/Resolved]
  - Dyspnoea [Recovered/Resolved]
  - Laryngeal oedema [Recovering/Resolving]
  - Chills [Recovered/Resolved]
  - Off label use [Recovered/Resolved]

NARRATIVE: CASE EVENT DATE: 20230430
